FAERS Safety Report 7628320 (Version 2)
Quarter: 2012Q4

REPORT INFORMATION
  Report Type: 
  Country: US (occurrence: US)
  Receive Date: 20101013
  Receipt Date: 20121002
  Transmission Date: 20130627
  Serious: Yes (Hospitalization, Other)
  Sender: FDA-Public Use
  Company Number: US-US-EMD SERONO, INC.-7020772

PATIENT
  Age: 54 None
  Sex: Female
  Weight: 94 kg

DRUGS (7)
  1. REBIF [Suspect]
     Indication: MULTIPLE SCLEROSIS
     Route: 058
     Dates: start: 20041006, end: 20120312
  2. HUMALOG [Concomitant]
     Indication: DIABETES MELLITUS
  3. HUMALIN N [Concomitant]
     Indication: DIABETES MELLITUS
  4. BACLOFEN [Concomitant]
     Indication: MULTIPLE SCLEROSIS
  5. GABAPENTIN [Concomitant]
     Indication: MULTIPLE SCLEROSIS
  6. PROZAC [Concomitant]
  7. TRAZODONE [Concomitant]

REACTIONS (4)
  - Retinal detachment [Unknown]
  - Cataract operation [Unknown]
  - Retinal haemorrhage [Not Recovered/Not Resolved]
  - Proteinuria [Unknown]
